FAERS Safety Report 6530710-1 (Version None)
Quarter: 2010Q1

REPORT INFORMATION
  Report Type: 
  Country: None (occurrence: None)
  Receive Date: 20100108
  Receipt Date: 20081205
  Transmission Date: 20100710
  Serious: No
  Sender: FDA-Public Use
  Company Number: A0759476A

PATIENT
  Sex: Male

DRUGS (4)
  1. LOVAZA [Suspect]
     Dosage: 1CAP PER DAY
     Route: 048
     Dates: start: 20081101
  2. DILANTIN [Concomitant]
  3. LAMICTAL [Concomitant]
     Route: 048
  4. VITAMINS [Concomitant]

REACTIONS (2)
  - DIARRHOEA [None]
  - FAECAL INCONTINENCE [None]
